FAERS Safety Report 16125546 (Version 2)
Quarter: 2019Q2

REPORT INFORMATION
  Report Type: Report from Study
  Country: US (occurrence: US)
  Receive Date: 20190328
  Receipt Date: 20190401
  Transmission Date: 20190711
  Serious: No
  Sender: FDA-Public Use
  Company Number: PHEH2019US013085

PATIENT
  Sex: Female
  Weight: 77.98 kg

DRUGS (1)
  1. COSENTYX [Suspect]
     Active Substance: SECUKINUMAB
     Indication: HIDRADENITIS
     Dosage: 300 MG, QMO
     Route: 058

REACTIONS (3)
  - Asthenia [Unknown]
  - Injection site pain [Unknown]
  - Product use in unapproved indication [Unknown]
